FAERS Safety Report 10175425 (Version 1)
Quarter: 2014Q2

REPORT INFORMATION
  Report Type: Spontaneous
  Country: US (occurrence: US)
  Receive Date: 20140515
  Receipt Date: 20140515
  Transmission Date: 20141212
  Serious: Yes (Other)
  Sender: FDA-Public Use
  Company Number: US-TAKEDA-2014TUS003835

PATIENT
  Sex: Female

DRUGS (2)
  1. BRINTELLIX [Suspect]
     Indication: MAJOR DEPRESSION
     Dosage: UNK
     Route: 048
     Dates: start: 2014, end: 2014
  2. CYMBALTA [Concomitant]
     Indication: MAJOR DEPRESSION
     Dosage: UNK
     Route: 048
     Dates: end: 2014

REACTIONS (2)
  - Aggression [Unknown]
  - Headache [Unknown]
